FAERS Safety Report 5235665-8 (Version None)
Quarter: 2007Q1

REPORT INFORMATION
  Report Type: 
  Country: None (occurrence: None)
  Receive Date: 20070212
  Receipt Date: 20070130
  Transmission Date: 20070707
  Serious: Yes (Hospitalization)
  Sender: FDA-Public Use
  Company Number: AR-GLAXOSMITHKLINE-B0457412A

PATIENT
  Age: 37 Year
  Sex: Male

DRUGS (8)
  1. ZIDOVUDINE [Suspect]
     Indication: ACQUIRED IMMUNODEFICIENCY SYNDROME
     Route: 065
  2. LAMIVUDINE [Suspect]
     Indication: ACQUIRED IMMUNODEFICIENCY SYNDROME
     Route: 065
  3. EFAVIRENZ [Suspect]
     Indication: ACQUIRED IMMUNODEFICIENCY SYNDROME
     Route: 065
  4. CYCLOSERINE [Concomitant]
     Indication: TUBERCULOSIS
     Route: 065
  5. ETHIONAMIDE [Concomitant]
     Indication: TUBERCULOSIS
     Route: 065
  6. ETHAMBUTOL HYDROCHLORIDE [Concomitant]
     Indication: TUBERCULOSIS
     Route: 065
  7. PARA-AMINOSALICYLIC [Concomitant]
     Indication: TUBERCULOSIS
     Route: 065
  8. OFLOXACIN [Concomitant]
     Indication: TUBERCULOSIS
     Route: 065

REACTIONS (7)
  - ACID FAST STAIN POSITIVE [None]
  - BRAIN ABSCESS [None]
  - CEREBRAL TOXOPLASMOSIS [None]
  - GRAND MAL CONVULSION [None]
  - HEADACHE [None]
  - IMMUNE RECONSTITUTION SYNDROME [None]
  - TUBERCULOSIS OF CENTRAL NERVOUS SYSTEM [None]
